FAERS Safety Report 5091262-9 (Version None)
Quarter: 2006Q3

REPORT INFORMATION
  Report Type: 
  Country: None (occurrence: None)
  Receive Date: 20060829
  Receipt Date: 20060822
  Transmission Date: 20061208
  Serious: Yes (Other)
  Sender: FDA-Public Use
  Company Number: US-BRISTOL-MYERS SQUIBB COMPANY-13485958

PATIENT
  Age: 56 Year
  Sex: Female

DRUGS (1)
  1. TEQUIN [Suspect]
     Indication: PNEUMONIA
     Route: 048
     Dates: start: 20060818, end: 20060818

REACTIONS (3)
  - COUGH [None]
  - THROAT TIGHTNESS [None]
  - WHEEZING [None]
